FAERS Safety Report 15967006 (Version 3)
Quarter: 2019Q1

REPORT INFORMATION
  Report Type: Report from Study
  Country: US (occurrence: US)
  Receive Date: 20190215
  Receipt Date: 20190317
  Transmission Date: 20190418
  Serious: No
  Sender: FDA-Public Use
  Company Number: PHEH2019US007059

PATIENT
  Age: 57 Year
  Sex: Female

DRUGS (3)
  1. GILENYA [Suspect]
     Active Substance: FINGOLIMOD HYDROCHLORIDE
     Dosage: 0.5 MG, 1 EVERY TWO DAYS
     Route: 048
     Dates: start: 20190213
  2. GILENYA [Suspect]
     Active Substance: FINGOLIMOD HYDROCHLORIDE
     Indication: MULTIPLE SCLEROSIS
     Dosage: 0.5 MG, QD
     Route: 048
     Dates: start: 20190212, end: 20190212
  3. GILENYA [Suspect]
     Active Substance: FINGOLIMOD HYDROCHLORIDE
     Dosage: 0.5 MG, QD
     Route: 048
     Dates: start: 20190213

REACTIONS (11)
  - Dry throat [Unknown]
  - Asthenia [Unknown]
  - Pruritus [Unknown]
  - Fatigue [Unknown]
  - Chest pain [Unknown]
  - Nasopharyngitis [Recovered/Resolved]
  - Dry mouth [Unknown]
  - Fatigue [Recovered/Resolved]
  - Underdose [Unknown]
  - Feeling jittery [Recovered/Resolved]
  - Dizziness [Recovered/Resolved]

NARRATIVE: CASE EVENT DATE: 20190212
